FAERS Safety Report 9183720 (Version 1)
Quarter: 2012Q4

REPORT INFORMATION
  Report Type: 
  Country: NL (occurrence: NL)
  Receive Date: 20121101
  Receipt Date: 20121101
  Transmission Date: 20130627
  Serious: Yes (Other)
  Sender: FDA-Public Use
  Company Number: NL-PFIZER INC-2012246072

PATIENT
  Age: 52 Year
  Sex: Male

DRUGS (5)
  1. CARDURA [Suspect]
     Indication: HYPERTENSION
     Dosage: 12 mg, daily
     Dates: start: 200810
  2. ATENOLOL [Suspect]
     Indication: HYPERTENSION
     Dosage: 150 mg, UNK
     Route: 048
     Dates: start: 201106, end: 20120926
  3. AMLODIPINE [Concomitant]
     Indication: HYPERTENSION
     Dosage: 10 mg, once daily
     Dates: start: 200810
  4. PERINDOPRIL [Concomitant]
     Indication: HYPERTENSION
     Dosage: 4 mg, UNK
     Dates: start: 200810
  5. ASA [Concomitant]
     Dosage: 80 mg, UNK
     Dates: start: 200810

REACTIONS (1)
  - Renal impairment [Unknown]
